FAERS Safety Report 7956900-9 (Version None)
Quarter: 2011Q4

REPORT INFORMATION
  Report Type: 
  Country: None (occurrence: None)
  Receive Date: 20111205
  Receipt Date: 20111201
  Transmission Date: 20120403
  Serious: No
  Sender: FDA-Public Use
  Company Number: US-B.I. PHARMACEUTICALS,INC./RIDGEFIELD-2011-BP-27240BP

PATIENT
  Sex: Male

DRUGS (12)
  1. SPIRIVA [Suspect]
     Indication: CHRONIC OBSTRUCTIVE PULMONARY DISEASE
     Dosage: 18 MCG
     Route: 055
     Dates: start: 20100601
  2. POTASSIUM CHLORIDE [Concomitant]
     Indication: BLOOD POTASSIUM DECREASED
     Route: 048
  3. SIMVASTATIN [Concomitant]
     Indication: BLOOD CHOLESTEROL INCREASED
  4. PRADAXA [Suspect]
     Indication: ATRIAL FIBRILLATION
     Dosage: 300 MG
     Route: 048
     Dates: start: 20111101
  5. ASPIRIN [Concomitant]
  6. SPIRALACTONE [Concomitant]
  7. OPCON-A [Suspect]
     Indication: DRY EYE
  8. COREG [Concomitant]
     Indication: CARDIAC FAILURE
  9. OPCON-A [Suspect]
     Indication: OCULAR HYPERAEMIA
  10. TORSEMIDE [Concomitant]
     Indication: CARDIAC FAILURE
  11. ALLOPURINOL [Concomitant]
     Indication: BLOOD URIC ACID INCREASED
  12. PLAVIX [Concomitant]
     Indication: CEREBROVASCULAR ACCIDENT PROPHYLAXIS

REACTIONS (6)
  - OCULAR HYPERAEMIA [None]
  - DRY EYE [None]
  - VISION BLURRED [None]
  - BLEPHARITIS [None]
  - EYE IRRITATION [None]
  - ATRIAL FIBRILLATION [None]
